FAERS Safety Report 10724741 (Version 9)
Quarter: 2015Q2

REPORT INFORMATION
  Report Type: Report from Study
  Country: JP (occurrence: JP)
  Receive Date: 20150120
  Receipt Date: 20150413
  Transmission Date: 20150821
  Serious: Yes (Death, Life-Threatening, Hospitalization, Other)
  Sender: FDA-Public Use
  Company Number: JP-PFIZER INC-2014328566

PATIENT
  Age: 61 Year
  Sex: Female
  Weight: 53 kg

DRUGS (21)
  1. XELJANZ [Suspect]
     Active Substance: TOFACITINIB CITRATE
     Indication: RHEUMATOID ARTHRITIS
     Dosage: 5 MG, 2X/DAY
     Route: 048
     Dates: start: 20130827, end: 20141008
  2. EDIROL [Concomitant]
     Active Substance: ELDECALCITOL
     Route: 048
  3. CLEXANE [Concomitant]
     Active Substance: ENOXAPARIN SODIUM
     Indication: PROPHYLAXIS
     Dosage: 2000 IU, 1X/DAY
     Route: 042
     Dates: start: 20141009, end: 20141011
  4. TRANSAMIN [Concomitant]
     Active Substance: TRANEXAMIC ACID
     Indication: HAEMOSTASIS
     Dosage: 1000 ML, 2X/DAY
     Route: 042
     Dates: start: 20141008
  5. REBAMIPIDE [Concomitant]
     Active Substance: REBAMIPIDE
     Indication: PAIN
     Dosage: UNK
     Route: 048
     Dates: start: 20141008, end: 20141122
  6. COCARL [Concomitant]
     Active Substance: ACETAMINOPHEN
     Indication: PAIN
     Dosage: UNK, 3X/DAY
     Route: 048
     Dates: start: 20141008, end: 20141122
  7. CELECOX [Concomitant]
     Active Substance: CELECOXIB
     Dosage: 200 MG, 2X/DAY
     Route: 048
     Dates: start: 20141024, end: 20141122
  8. NEXIUM [Concomitant]
     Active Substance: ESOMEPRAZOLE MAGNESIUM
     Route: 048
  9. RHEUMATREX [Suspect]
     Active Substance: METHOTREXATE SODIUM
     Indication: RHEUMATOID ARTHRITIS
     Dosage: 8 MG, WEEKLY
     Route: 048
     Dates: end: 20140924
  10. ASPARA-CA [Concomitant]
     Active Substance: CALCIUM ASPARTATE
     Route: 048
  11. RHEUMATREX [Suspect]
     Active Substance: METHOTREXATE SODIUM
     Dosage: 8 MG, WEEKLY
     Route: 048
     Dates: start: 20141023, end: 20141222
  12. PREDNISOLONE. [Concomitant]
     Active Substance: PREDNISOLONE
     Dosage: 5 MG, DAILY
     Dates: start: 20131022, end: 20140924
  13. PREDNISOLONE. [Concomitant]
     Active Substance: PREDNISOLONE
     Dosage: 5 MG, DAILY
     Dates: start: 20141111, end: 20141222
  14. CEFZON [Concomitant]
     Active Substance: CEFDINIR
     Dosage: 100 MG, 3X/DAY
     Route: 048
     Dates: start: 20141011, end: 20141013
  15. FLOMOX [Concomitant]
     Active Substance: CEFCAPENE PIVOXIL HYDROCHLORIDE HYDRATE
     Indication: PYREXIA
     Dosage: 100 MG, 3X/DAY
     Route: 048
     Dates: start: 20141030, end: 20141122
  16. FOLIAMIN [Concomitant]
     Active Substance: FOLIC ACID
  17. XELJANZ [Suspect]
     Active Substance: TOFACITINIB CITRATE
     Dosage: 5 MG, 2X/DAY
     Route: 048
     Dates: start: 20141023, end: 20141222
  18. PREDNISOLONE. [Concomitant]
     Active Substance: PREDNISOLONE
     Dosage: 10 MG, DAILY
     Dates: start: 20130605, end: 20131021
  19. LOXONIN [Concomitant]
     Active Substance: LOXOPROFEN SODIUM
     Route: 062
  20. PREDNISOLONE. [Concomitant]
     Active Substance: PREDNISOLONE
     Dosage: 4 MG, DAILY
     Dates: end: 20130604
  21. CEFAZOLIN SODIUM. [Concomitant]
     Active Substance: CEFAZOLIN SODIUM
     Dosage: 2 G, 2X/DAY
     Route: 042
     Dates: start: 20141008, end: 20141010

REACTIONS (8)
  - Disseminated intravascular coagulation [Unknown]
  - Cerebral haemorrhage [Fatal]
  - Septic shock [Unknown]
  - Melaena [Unknown]
  - Interstitial lung disease [Unknown]
  - Joint swelling [Unknown]
  - Feeling hot [Unknown]
  - Urinary tract infection [Not Recovered/Not Resolved]

NARRATIVE: CASE EVENT DATE: 20141027
